FAERS Safety Report 5637503-8 (Version None)
Quarter: 2008Q1

REPORT INFORMATION
  Report Type: 
  Country: None (occurrence: None)
  Receive Date: 20080225
  Receipt Date: 20080214
  Transmission Date: 20080703
  Serious: Yes (Hospitalization, Disabling)
  Sender: FDA-Public Use
  Company Number: GB-PFIZER INC-2008014583

PATIENT
  Age: 47 Year
  Sex: Female

DRUGS (2)
  1. AZITHROMYCIN [Suspect]
     Indication: TOOTH INFECTION
     Route: 048
  2. AMOXICILLIN [Concomitant]
     Route: 048

REACTIONS (1)
  - APLASTIC ANAEMIA [None]
